FAERS Safety Report 6406651-7 (Version None)
Quarter: 2009Q4

REPORT INFORMATION
  Report Type: 
  Country: None (occurrence: None)
  Receive Date: 20091020
  Receipt Date: 20091007
  Transmission Date: 20100525
  Serious: Yes (Life-Threatening, Hospitalization, Other)
  Sender: FDA-Public Use
  Company Number: FR-BIOGENIDEC-2009BI032420

PATIENT
  Age: 30 Year
  Sex: Female
  Weight: 55 kg

DRUGS (6)
  1. TYSABRI [Suspect]
     Indication: MULTIPLE SCLEROSIS
     Route: 042
     Dates: start: 20070824, end: 20090703
  2. 3,4-DIAMINOPYRIDINE [Concomitant]
     Indication: ASTHENIA
     Route: 048
     Dates: start: 20080201, end: 20090712
  3. BACLOFEN [Concomitant]
     Indication: MUSCLE SPASTICITY
     Route: 048
     Dates: start: 20090313
  4. TETRAZEPAM [Concomitant]
     Indication: MUSCLE SPASTICITY
     Route: 048
     Dates: start: 20090605, end: 20090712
  5. DEROXAT [Concomitant]
  6. MOPRAL [Concomitant]

REACTIONS (1)
  - ENCEPHALITIS HERPES [None]
